FAERS Safety Report 4825150-7 (Version None)
Quarter: 2005Q4

REPORT INFORMATION
  Report Type: 
  Country: None (occurrence: None)
  Receive Date: 20051109
  Receipt Date: 20051109
  Transmission Date: 20060501
  Serious: Yes (Other)
  Sender: FDA-Public Use
  Company Number: None

PATIENT
  Age: 26 Year
  Sex: Female

DRUGS (6)
  1. DEMEROL [Suspect]
     Indication: PAIN
     Dosage: PRN Q6H  IVP
     Route: 042
     Dates: start: 20051026, end: 20051027
  2. NS [Concomitant]
  3. LACTULOSE [Concomitant]
  4. PROTONIX [Concomitant]
  5. BACTRIM [Concomitant]
  6. FLAGYL [Concomitant]

REACTIONS (2)
  - PRURITUS [None]
  - RASH [None]
